FAERS Safety Report 15004688 (Version 2)
Quarter: 2018Q3

REPORT INFORMATION
  Report Type: Report from Study
  Country: CA (occurrence: CA)
  Receive Date: 20180613
  Receipt Date: 20180709
  Transmission Date: 20181010
  Serious: Yes (Other)
  Sender: FDA-Public Use
  Company Number: PHHY2016CA100658

PATIENT
  Age: 61 Year
  Sex: Male

DRUGS (16)
  1. COSENTYX [Suspect]
     Active Substance: SECUKINUMAB
     Dosage: UNK
     Route: 065
     Dates: start: 20180601
  2. METHOTREXATE. [Suspect]
     Active Substance: METHOTREXATE
     Indication: PRODUCT USED FOR UNKNOWN INDICATION
     Dosage: UNK
     Route: 065
  3. COSENTYX [Suspect]
     Active Substance: SECUKINUMAB
     Dosage: 300 UNK, UNK
     Route: 058
     Dates: start: 20180325
  4. COSENTYX [Suspect]
     Active Substance: SECUKINUMAB
     Dosage: 300 MG, QMO
     Route: 058
     Dates: start: 20170125
  5. COSENTYX [Suspect]
     Active Substance: SECUKINUMAB
     Dosage: 300 MG, QMO
     Route: 058
     Dates: start: 20180420
  6. LEFLUNOMIDE. [Suspect]
     Active Substance: LEFLUNOMIDE
     Indication: PRODUCT USED FOR UNKNOWN INDICATION
     Dosage: UNK
     Route: 065
     Dates: start: 20130101
  7. COSENTYX [Suspect]
     Active Substance: SECUKINUMAB
     Indication: PSORIASIS
     Dosage: 300 MG, QMO
     Route: 058
     Dates: start: 20160630, end: 20160721
  8. COSENTYX [Suspect]
     Active Substance: SECUKINUMAB
     Indication: PSORIATIC ARTHROPATHY
     Dosage: 300 MG, QMO
     Route: 058
     Dates: start: 20160728
  9. COSENTYX [Suspect]
     Active Substance: SECUKINUMAB
     Dosage: 300 MG, QMO
     Route: 058
     Dates: start: 20161025
  10. COSENTYX [Suspect]
     Active Substance: SECUKINUMAB
     Dosage: 300 MG, QMO
     Route: 058
     Dates: start: 20170325
  11. COSENTYX [Suspect]
     Active Substance: SECUKINUMAB
     Dosage: UNK
     Route: 065
     Dates: start: 20180615
  12. CIMZIA [Concomitant]
     Active Substance: CERTOLIZUMAB PEGOL
     Indication: PRODUCT USED FOR UNKNOWN INDICATION
     Route: 065
     Dates: start: 20130101
  13. HUMIRA [Concomitant]
     Active Substance: ADALIMUMAB
     Indication: PRODUCT USED FOR UNKNOWN INDICATION
     Dosage: UNK
     Route: 065
     Dates: start: 20060101, end: 20130101
  14. COSENTYX [Suspect]
     Active Substance: SECUKINUMAB
     Dosage: UNK
     Route: 065
     Dates: start: 20180225
  15. COSENTYX [Suspect]
     Active Substance: SECUKINUMAB
     Dosage: 300 MG, Q2W
     Route: 058
     Dates: start: 201805
  16. COSENTYX [Suspect]
     Active Substance: SECUKINUMAB
     Dosage: 300 MG, QMO
     Route: 058
     Dates: start: 2017

REACTIONS (54)
  - Tonsillar inflammation [Recovering/Resolving]
  - Malaise [Not Recovered/Not Resolved]
  - Lymphadenopathy [Unknown]
  - Peripheral swelling [Unknown]
  - Hypertension [Unknown]
  - Inappropriate schedule of drug administration [Unknown]
  - Hyperhidrosis [Unknown]
  - Hyperglycaemia [Unknown]
  - Psoriatic arthropathy [Unknown]
  - Feeling abnormal [Recovering/Resolving]
  - Arthropathy [Unknown]
  - Oropharyngeal pain [Unknown]
  - Sinus pain [Recovered/Resolved]
  - Diabetes mellitus [Unknown]
  - Joint swelling [Not Recovered/Not Resolved]
  - Musculoskeletal pain [Unknown]
  - General physical condition abnormal [Recovering/Resolving]
  - Irritable bowel syndrome [Unknown]
  - Skin cancer [Unknown]
  - Thirst [Unknown]
  - Arthralgia [Recovering/Resolving]
  - Osteoarthritis [Unknown]
  - Gait disturbance [Unknown]
  - Scab [Unknown]
  - Influenza like illness [Unknown]
  - Pain in extremity [Unknown]
  - Nausea [Recovering/Resolving]
  - Fatigue [Unknown]
  - Injury [Unknown]
  - Skin plaque [Unknown]
  - Drug ineffective [Unknown]
  - Sneezing [Unknown]
  - Chest discomfort [Unknown]
  - Eating disorder [Unknown]
  - Meniscus injury [Unknown]
  - Diarrhoea [Recovering/Resolving]
  - Blood glucose fluctuation [Unknown]
  - Back pain [Unknown]
  - Ear swelling [Recovered/Resolved]
  - Pruritus [Recovered/Resolved]
  - Swelling [Unknown]
  - Gastroenteritis viral [Unknown]
  - Drug effect incomplete [Unknown]
  - Nasal congestion [Unknown]
  - Pain [Unknown]
  - Stress [Unknown]
  - Dyspepsia [Unknown]
  - Memory impairment [Unknown]
  - Immune system disorder [Unknown]
  - Skin odour abnormal [Recovering/Resolving]
  - Headache [Unknown]
  - Viral infection [Unknown]
  - Nasopharyngitis [Recovering/Resolving]
  - Psoriasis [Recovering/Resolving]

NARRATIVE: CASE EVENT DATE: 2016
